FAERS Safety Report 15147248 (Version 2)
Quarter: 2018Q3

REPORT INFORMATION
  Report Type: Spontaneous
  Country: US (occurrence: US)
  Receive Date: 20180716
  Receipt Date: 20180831
  Transmission Date: 20181010
  Serious: No
  Sender: FDA-Public Use
  Company Number: US-TEVA-2018-US-925726

PATIENT
  Age: 83 Year
  Sex: Female

DRUGS (1)
  1. CLONAZEPAM. [Suspect]
     Active Substance: CLONAZEPAM
     Indication: TERMINAL INSOMNIA
     Route: 065
     Dates: start: 201801

REACTIONS (2)
  - Therapeutic response unexpected [Unknown]
  - Drug prescribing error [Unknown]
